FAERS Safety Report 4697759-5 (Version None)
Quarter: 2005Q2

REPORT INFORMATION
  Report Type: 
  Country: None (occurrence: None)
  Receive Date: 20050623
  Receipt Date: 20050614
  Transmission Date: 20051028
  Serious: Yes (Other)
  Sender: FDA-Public Use
  Company Number: JP-JNJFOC-20040702328

PATIENT
  Sex: Female

DRUGS (49)
  1. RISPERDAL [Suspect]
     Route: 049
  2. RISPERDAL [Suspect]
     Route: 049
  3. RISPERDAL [Suspect]
     Route: 049
  4. RISPERDAL [Suspect]
     Route: 049
  5. RISPERDAL [Suspect]
     Route: 049
  6. RISPERDAL [Suspect]
     Route: 049
  7. RISPERDAL [Suspect]
     Route: 049
  8. RISPERDAL [Suspect]
     Route: 049
  9. RISPERDAL [Suspect]
     Route: 049
  10. RISPERDAL [Suspect]
     Route: 049
  11. RISPERDAL [Suspect]
     Route: 049
  12. RISPERDAL [Suspect]
     Route: 049
  13. RISPERDAL [Suspect]
     Route: 049
  14. RISPERDAL [Suspect]
     Indication: SCHIZOPHRENIA
     Route: 049
  15. FLUNITRAZEPAM [Concomitant]
     Route: 049
  16. FLUNITRAZEPAM [Concomitant]
     Route: 049
  17. FLUNITRAZEPAM [Concomitant]
     Route: 049
  18. TRIHEXYPHENIDYL HCL [Concomitant]
     Route: 049
     Dates: start: 20031001
  19. TRIHEXYPHENIDYL HCL [Concomitant]
     Route: 049
     Dates: start: 20031001
  20. TRIHEXYPHENIDYL HCL [Concomitant]
     Route: 049
     Dates: start: 20031001
  21. TRIHEXYPHENIDYL HCL [Concomitant]
     Route: 049
     Dates: start: 20031001
  22. TRIHEXYPHENIDYL HCL [Concomitant]
     Route: 049
     Dates: start: 20031001
  23. TRIHEXYPHENIDYL HCL [Concomitant]
     Route: 049
     Dates: start: 20031001
  24. TRIHEXYPHENIDYL HCL [Concomitant]
     Route: 049
     Dates: start: 20031001
  25. ETIZOLAM [Concomitant]
     Route: 049
     Dates: start: 20031006, end: 20031125
  26. LORAZEPAM [Concomitant]
     Route: 049
  27. LORAZEPAM [Concomitant]
     Route: 049
  28. LORAZEPAM [Concomitant]
     Route: 049
  29. LORAZEPAM [Concomitant]
     Route: 049
  30. LORAZEPAM [Concomitant]
     Route: 049
  31. OLANZAPINE [Concomitant]
     Route: 049
     Dates: start: 20031006
  32. OLANZAPINE [Concomitant]
     Route: 049
     Dates: start: 20031006
  33. QUAZEPAM [Concomitant]
     Route: 049
     Dates: start: 20031224
  34. QUAZEPAM [Concomitant]
     Route: 049
     Dates: start: 20031224
  35. QUAZEPAM [Concomitant]
     Route: 049
     Dates: start: 20031224
  36. QUAZEPAM [Concomitant]
     Route: 049
     Dates: start: 20031224
  37. SENNOSIDE [Concomitant]
  38. SENNOSIDE [Concomitant]
  39. SENNOSIDE [Concomitant]
  40. SENNOSIDE [Concomitant]
  41. BROTIZOLAM [Concomitant]
  42. BROTIZOLAM [Concomitant]
  43. MAGNESIUM OXIDE [Concomitant]
  44. MAGNESIUM OXIDE [Concomitant]
  45. MAGNESIUM OXIDE [Concomitant]
  46. MAGNESIUM OXIDE [Concomitant]
  47. MAGNESIUM OXIDE [Concomitant]
  48. MAGNESIUM OXIDE [Concomitant]
  49. MAGNESIUM OXIDE [Concomitant]

REACTIONS (8)
  - AKATHISIA [None]
  - ALANINE AMINOTRANSFERASE INCREASED [None]
  - CONSTIPATION [None]
  - LEUKOPENIA [None]
  - MUSCLE RIGIDITY [None]
  - THIRST [None]
  - TREMOR [None]
  - WEIGHT INCREASED [None]
